FAERS Safety Report 5141737-9 (Version None)
Quarter: 2006Q4

REPORT INFORMATION
  Report Type: 
  Country: None (occurrence: None)
  Receive Date: 20061027
  Receipt Date: 20060626
  Transmission Date: 20070319
  Serious: Yes (Hospitalization)
  Sender: FDA-Public Use
  Company Number: JP_031001954

PATIENT
  Age: 35 Year
  Sex: Female

DRUGS (3)
  1. HUMALOG [Suspect]
     Indication: DIABETES MELLITUS INSULIN-DEPENDENT
     Dosage: 40 U DAILY (1/D), SUBCUTANEOUS
     Route: 058
     Dates: start: 20010101
  2. PENFILL N (INSULIN HUMAN INJECTION, ISOPHANE) [Concomitant]
  3. HUMALOG PEN [Concomitant]

REACTIONS (3)
  - DRUG EXPOSURE DURING PREGNANCY [None]
  - PRE-ECLAMPSIA [None]
  - PREGNANCY [None]
